FAERS Safety Report 14953698 (Version 4)
Quarter: 2018Q3

REPORT INFORMATION
  Report Type: Report from Study
  Country: US (occurrence: US)
  Receive Date: 20180530
  Receipt Date: 20180921
  Transmission Date: 20181010
  Serious: Yes (Hospitalization, Other)
  Sender: FDA-Public Use
  Company Number: US-ACTELION-A-NJ2018-169186

PATIENT
  Age: 40 Year
  Sex: Female

DRUGS (4)
  1. TRACLEER [Suspect]
     Active Substance: BOSENTAN
     Indication: PULMONARY ARTERIAL HYPERTENSION
     Dosage: 125 MG, BID
     Route: 048
     Dates: start: 20160401
  2. SILDENAFIL. [Concomitant]
     Active Substance: SILDENAFIL
  3. OXYGEN. [Concomitant]
     Active Substance: OXYGEN
  4. LORAZEPAM. [Concomitant]
     Active Substance: LORAZEPAM

REACTIONS (36)
  - Anion gap increased [Unknown]
  - Rib fracture [Unknown]
  - Urinary tract infection [Unknown]
  - Bladder catheterisation [Unknown]
  - Menstruation irregular [Unknown]
  - Blood thyroid stimulating hormone increased [Unknown]
  - Nausea [Unknown]
  - Platelet count decreased [Unknown]
  - Cough [Unknown]
  - Peripheral swelling [Recovering/Resolving]
  - Hepatic congestion [Recovering/Resolving]
  - Septic shock [Unknown]
  - Acute kidney injury [Recovering/Resolving]
  - Blood sodium decreased [Unknown]
  - Varicose vein [Unknown]
  - Pelvic pain [Unknown]
  - Vaginal haemorrhage [Unknown]
  - Pyrexia [Unknown]
  - Blood lactic acid increased [Unknown]
  - Abdominal pain [Unknown]
  - Occult blood positive [Unknown]
  - Blood urine present [Unknown]
  - Pain in extremity [Unknown]
  - Pneumonia klebsiella [Unknown]
  - Blood creatinine increased [Unknown]
  - Diarrhoea haemorrhagic [Unknown]
  - Cardiogenic shock [Unknown]
  - Vomiting [Unknown]
  - Rectal haemorrhage [Unknown]
  - Haematuria [Recovering/Resolving]
  - Lipase increased [Unknown]
  - Haemoglobin decreased [Unknown]
  - Haematocrit decreased [Unknown]
  - Musculoskeletal chest pain [Unknown]
  - Pneumonia [Unknown]
  - Drug administration error [Unknown]

NARRATIVE: CASE EVENT DATE: 201703
